FAERS Safety Report 18660669 (Version 11)
Quarter: 2021Q4

REPORT INFORMATION
  Report Type: Report from Study
  Country: US (occurrence: US)
  Receive Date: 20201224
  Receipt Date: 20211122
  Transmission Date: 20220304
  Serious: Yes (Hospitalization, Other)
  Sender: FDA-Public Use
  Company Number: US-TAKEDA-2020TUS059085

PATIENT
  Age: 52 Year
  Sex: Female

DRUGS (32)
  1. TEDUGLUTIDE [Suspect]
     Active Substance: TEDUGLUTIDE
     Indication: Short-bowel syndrome
     Dosage: 1.103 MILLIGRAM, QD
     Route: 058
     Dates: start: 20201116
  2. TEDUGLUTIDE [Suspect]
     Active Substance: TEDUGLUTIDE
     Indication: Short-bowel syndrome
     Dosage: 1.103 MILLIGRAM, QD
     Route: 058
     Dates: start: 20201116
  3. TEDUGLUTIDE [Suspect]
     Active Substance: TEDUGLUTIDE
     Indication: Short-bowel syndrome
     Dosage: 1.103 MILLIGRAM, QD
     Route: 058
     Dates: start: 20201116
  4. TEDUGLUTIDE [Suspect]
     Active Substance: TEDUGLUTIDE
     Indication: Short-bowel syndrome
     Dosage: 1.103 MILLIGRAM, QD
     Route: 058
     Dates: start: 20201116
  5. TEDUGLUTIDE [Suspect]
     Active Substance: TEDUGLUTIDE
     Indication: Ileostomy
     Dosage: 2.175 MILLIGRAM, QD
     Route: 058
     Dates: start: 20201117, end: 20201201
  6. TEDUGLUTIDE [Suspect]
     Active Substance: TEDUGLUTIDE
     Indication: Ileostomy
     Dosage: 2.175 MILLIGRAM, QD
     Route: 058
     Dates: start: 20201117, end: 20201201
  7. TEDUGLUTIDE [Suspect]
     Active Substance: TEDUGLUTIDE
     Indication: Ileostomy
     Dosage: 2.175 MILLIGRAM, QD
     Route: 058
     Dates: start: 20201117, end: 20201201
  8. TEDUGLUTIDE [Suspect]
     Active Substance: TEDUGLUTIDE
     Indication: Ileostomy
     Dosage: 2.175 MILLIGRAM, QD
     Route: 058
     Dates: start: 20201117, end: 20201201
  9. TEDUGLUTIDE [Suspect]
     Active Substance: TEDUGLUTIDE
     Dosage: 2.175 MILLIGRAM, QD
     Route: 058
     Dates: start: 20201117
  10. TEDUGLUTIDE [Suspect]
     Active Substance: TEDUGLUTIDE
     Dosage: 2.175 MILLIGRAM, QD
     Route: 058
     Dates: start: 20201117
  11. TEDUGLUTIDE [Suspect]
     Active Substance: TEDUGLUTIDE
     Dosage: 2.175 MILLIGRAM, QD
     Route: 058
     Dates: start: 20201117
  12. TEDUGLUTIDE [Suspect]
     Active Substance: TEDUGLUTIDE
     Dosage: 2.175 MILLIGRAM, QD
     Route: 058
     Dates: start: 20201117
  13. TEDUGLUTIDE [Suspect]
     Active Substance: TEDUGLUTIDE
     Dosage: 1.103 MILLIGRAM, QD
     Route: 058
     Dates: start: 202011
  14. TEDUGLUTIDE [Suspect]
     Active Substance: TEDUGLUTIDE
     Dosage: 1.103 MILLIGRAM, QD
     Route: 058
     Dates: start: 202011
  15. TEDUGLUTIDE [Suspect]
     Active Substance: TEDUGLUTIDE
     Dosage: 1.103 MILLIGRAM, QD
     Route: 058
     Dates: start: 202011
  16. TEDUGLUTIDE [Suspect]
     Active Substance: TEDUGLUTIDE
     Dosage: 1.103 MILLIGRAM, QD
     Route: 058
     Dates: start: 202011
  17. TEDUGLUTIDE [Suspect]
     Active Substance: TEDUGLUTIDE
     Dosage: 1.103 MILLIGRAM, QOD
     Route: 058
     Dates: start: 202011
  18. TEDUGLUTIDE [Suspect]
     Active Substance: TEDUGLUTIDE
     Dosage: 1.103 MILLIGRAM, QOD
     Route: 058
     Dates: start: 202011
  19. TEDUGLUTIDE [Suspect]
     Active Substance: TEDUGLUTIDE
     Dosage: 1.103 MILLIGRAM, QOD
     Route: 058
     Dates: start: 202011
  20. TEDUGLUTIDE [Suspect]
     Active Substance: TEDUGLUTIDE
     Dosage: 1.103 MILLIGRAM, QOD
     Route: 058
     Dates: start: 202011
  21. TEDUGLUTIDE [Suspect]
     Active Substance: TEDUGLUTIDE
     Dosage: 1.102 MILLIGRAM, QD
     Route: 058
     Dates: start: 20201117
  22. TEDUGLUTIDE [Suspect]
     Active Substance: TEDUGLUTIDE
     Dosage: 1.102 MILLIGRAM, QD
     Route: 058
     Dates: start: 20201117
  23. TEDUGLUTIDE [Suspect]
     Active Substance: TEDUGLUTIDE
     Dosage: 1.102 MILLIGRAM, QD
     Route: 058
     Dates: start: 20201117
  24. TEDUGLUTIDE [Suspect]
     Active Substance: TEDUGLUTIDE
     Dosage: 1.102 MILLIGRAM, QD
     Route: 058
     Dates: start: 20201117
  25. TEDUGLUTIDE [Suspect]
     Active Substance: TEDUGLUTIDE
     Dosage: 1.102 MILLIGRAM, QD
     Route: 058
     Dates: start: 20201117
  26. TEDUGLUTIDE [Suspect]
     Active Substance: TEDUGLUTIDE
     Dosage: 1.102 MILLIGRAM, QD
     Route: 058
     Dates: start: 20201117
  27. TEDUGLUTIDE [Suspect]
     Active Substance: TEDUGLUTIDE
     Dosage: 1.102 MILLIGRAM, QD
     Route: 058
     Dates: start: 20201117
  28. TEDUGLUTIDE [Suspect]
     Active Substance: TEDUGLUTIDE
     Dosage: 1.102 MILLIGRAM, QD
     Route: 058
     Dates: start: 20201117
  29. TEDUGLUTIDE [Suspect]
     Active Substance: TEDUGLUTIDE
     Dosage: 1.102 MILLIGRAM, QD
     Route: 058
     Dates: start: 20201118
  30. TEDUGLUTIDE [Suspect]
     Active Substance: TEDUGLUTIDE
     Dosage: 1.102 MILLIGRAM, QD
     Route: 058
     Dates: start: 20201118
  31. TEDUGLUTIDE [Suspect]
     Active Substance: TEDUGLUTIDE
     Dosage: 1.102 MILLIGRAM, QD
     Route: 058
     Dates: start: 20201118
  32. TEDUGLUTIDE [Suspect]
     Active Substance: TEDUGLUTIDE
     Dosage: 1.102 MILLIGRAM, QD
     Route: 058
     Dates: start: 20201118

REACTIONS (15)
  - Constipation [Unknown]
  - Pyrexia [Unknown]
  - Hospitalisation [Unknown]
  - Complication associated with device [Unknown]
  - Device related thrombosis [Unknown]
  - Weight decreased [Unknown]
  - Decreased appetite [Unknown]
  - Stoma site pain [Unknown]
  - Stoma site induration [Unknown]
  - Drug ineffective [Unknown]
  - Weight increased [Unknown]
  - Stoma complication [Unknown]
  - Nausea [Unknown]
  - Product dose omission issue [Unknown]
  - Off label use [Unknown]

NARRATIVE: CASE EVENT DATE: 20201201
